FAERS Safety Report 4686328-9 (Version None)
Quarter: 2005Q2

REPORT INFORMATION
  Report Type: 
  Country: None (occurrence: None)
  Receive Date: 20050606
  Receipt Date: 20050523
  Transmission Date: 20051028
  Serious: Yes (Other)
  Sender: FDA-Public Use
  Company Number: 2005078616

PATIENT
  Sex: Female

DRUGS (3)
  1. NEURONTIN [Suspect]
     Indication: NERVE INJURY
     Dosage: ORAL
     Route: 048
  2. SKELAXIN [Concomitant]
  3. OXYCONTIN [Concomitant]

REACTIONS (9)
  - BACK PAIN [None]
  - DRUG WITHDRAWAL SYNDROME [None]
  - INTERVERTEBRAL DISC PROTRUSION [None]
  - MUSCLE SPASMS [None]
  - PAIN [None]
  - PARAESTHESIA [None]
  - ROTATOR CUFF SYNDROME [None]
  - TREATMENT NONCOMPLIANCE [None]
  - WEIGHT INCREASED [None]
